FAERS Safety Report 12631001 (Version 2)
Quarter: 2016Q3

REPORT INFORMATION
  Report Type: Spontaneous
  Country: US (occurrence: US)
  Receive Date: 20160808
  Receipt Date: 20160808
  Transmission Date: 20161109
  Serious: No
  Sender: FDA-Public Use
  Company Number: US-BEH-2015051805

PATIENT
  Sex: Female
  Weight: 88 kg

DRUGS (29)
  1. ETODOLAC. [Concomitant]
     Active Substance: ETODOLAC
     Route: 048
  2. PREDNISONE. [Concomitant]
     Active Substance: PREDNISONE
     Route: 048
  3. FLUTICASONE [Concomitant]
     Active Substance: FLUTICASONE\FLUTICASONE PROPIONATE
     Dosage: 2 SPARAY
     Route: 045
  4. LYRICA [Concomitant]
     Active Substance: PREGABALIN
     Dosage: 75 MG CAPSULE
     Route: 048
  5. BUDESONIDE. [Concomitant]
     Active Substance: BUDESONIDE
     Dosage: 0.25 MG/2ML SUSPENSION (1 DOSE 2 TIMES A DAY)
  6. HIZENTRA [Suspect]
     Active Substance: HUMAN IMMUNOGLOBULIN G
     Indication: IMMUNODEFICIENCY COMMON VARIABLE
     Dosage: 2 GM 10 ML VIAL
     Route: 058
  7. OMEPRAZOLE. [Concomitant]
     Active Substance: OMEPRAZOLE
     Route: 048
  8. OMEGA-3 FISH OIL [Concomitant]
     Active Substance: FISH OIL\OMEGA-3 FATTY ACIDS
  9. HIZENTRA [Suspect]
     Active Substance: HUMAN IMMUNOGLOBULIN G
     Dosage: 4 GM 20 ML VIAL
     Route: 058
  10. EPIPEN [Concomitant]
     Active Substance: EPINEPHRINE
     Indication: ANAPHYLACTIC REACTION
     Dosage: 1 DOSE AS DIRECTED
     Route: 030
  11. OXYGEN. [Concomitant]
     Active Substance: OXYGEN
     Dosage: 1 DOSE AS DIRECTED (NC)
  12. LANTUS [Concomitant]
     Active Substance: INSULIN GLARGINE
     Dosage: 100 UNITS/ML VIAL AS DIRECTED 2 TIMES A DAY 28 UNITS
     Route: 058
  13. BENADRYL [Concomitant]
     Active Substance: DIPHENHYDRAMINE HYDROCHLORIDE
     Dosage: 50 MG EVERY 4-6 HOURS AS NEEDED
     Route: 048
  14. METHOCARBAMOL. [Concomitant]
     Active Substance: METHOCARBAMOL
     Dosage: 1 DOSE EVERY 6 HOUR AS NEEDED
     Route: 048
  15. LMX [Concomitant]
     Active Substance: LIDOCAINE
     Indication: PREMEDICATION
     Dosage: 1 DOSE AS DIRECTED (4%)
     Route: 061
  16. BENZONATATE. [Concomitant]
     Active Substance: BENZONATATE
     Dosage: 1 CAP EVERY 8 HOURS AS NEEDED
     Route: 048
  17. TOVIAZ [Concomitant]
     Active Substance: FESOTERODINE FUMARATE
     Dosage: 4 MG
     Route: 048
  18. FENOFIBRATE. [Concomitant]
     Active Substance: FENOFIBRATE
     Route: 048
  19. LISINOPRIL. [Concomitant]
     Active Substance: LISINOPRIL
     Route: 048
  20. ALBUTEROL. [Concomitant]
     Active Substance: ALBUTEROL
     Dosage: 2.5 MG/0.5 ML SOLUTION (1 DOSE AS NEEDED)
  21. MUCINEX DM [Concomitant]
     Active Substance: DEXTROMETHORPHAN HYDROBROMIDE\GUAIFENESIN
     Dosage: 1 DOSE EVERY 12 HOUR AS NEEDED (600-30 MG)
     Route: 048
  22. DIPHENHYDRAMINE. [Concomitant]
     Active Substance: DIPHENHYDRAMINE
     Indication: ANAPHYLACTIC REACTION
     Dosage: 1 TAB AS NEEDED
     Route: 048
  23. RANITIDINE. [Concomitant]
     Active Substance: RANITIDINE
     Route: 048
  24. GRAPE SEED [Concomitant]
     Route: 048
  25. LEVAQUIN [Concomitant]
     Active Substance: LEVOFLOXACIN
     Route: 048
  26. SINGULAIR [Concomitant]
     Active Substance: MONTELUKAST SODIUM
     Dosage: 1 TAB IN THE EVENING
     Route: 048
  27. AMBIEN [Concomitant]
     Active Substance: ZOLPIDEM TARTRATE
     Dosage: 1 TAB IN THE EVENING
     Route: 048
  28. HYDROCODONE BITARTRATE AND ACETAMINOPHEN [Concomitant]
     Active Substance: ACETAMINOPHEN\HYDROCODONE BITARTRATE
     Dosage: N 10-325 (1 DOSE AT BEDTIME AS NEEDED) (10-325 MG)
     Route: 048
  29. POTASSIUM [Concomitant]
     Active Substance: POTASSIUM
     Route: 047

REACTIONS (2)
  - Headache [Unknown]
  - Fatigue [Unknown]
